FAERS Safety Report 9010423 (Version 1)
Quarter: 2013Q1

REPORT INFORMATION
  Report Type: Spontaneous
  Country: FR (occurrence: FR)
  Receive Date: 20130109
  Receipt Date: 20130109
  Transmission Date: 20140127
  Serious: Yes (Hospitalization)
  Sender: FDA-Public Use
  Company Number: FR-ROCHE-1177755

PATIENT
  Age: 3 Year
  Sex: Male

DRUGS (3)
  1. RIVOTRIL [Suspect]
     Indication: STATUS EPILEPTICUS
     Route: 048
     Dates: start: 20121023, end: 20121028
  2. MICROPAKINE [Suspect]
     Indication: GRAND MAL CONVULSION
     Route: 048
     Dates: start: 20121023, end: 20121028
  3. URBANYL [Concomitant]

REACTIONS (1)
  - Cerebellar syndrome [Recovered/Resolved]
